FAERS Safety Report 24315320 (Version 1)
Quarter: 2024Q3

REPORT INFORMATION
  Report Type: Other
  Country: DK (occurrence: DK)
  Receive Date: 20240913
  Receipt Date: 20240913
  Transmission Date: 20241017
  Serious: Yes (Other)
  Sender: GLENMARK
  Company Number: None

PATIENT

DRUGS (1)
  1. RYALTRIS [Suspect]
     Active Substance: MOMETASONE FUROATE MONOHYDRATE\OLOPATADINE HYDROCHLORIDE
     Indication: Rhinitis allergic
     Dosage: 2 DOSAGE FORM, BID, 2 PUFFS IN EACH NOSTRIL MORNING AND EVENING ON AVERAGE EVERY SECOND DAY.
     Route: 045
     Dates: start: 202404, end: 2024

REACTIONS (8)
  - Periorbital cellulitis [Recovered/Resolved]
  - Swelling of eyelid [Recovering/Resolving]
  - Periorbital swelling [Recovering/Resolving]
  - Erythema [Recovering/Resolving]
  - Erythema of eyelid [Recovering/Resolving]
  - Blepharitis [Recovered/Resolved]
  - Pain [Recovering/Resolving]
  - Foreign body sensation in eyes [Unknown]

NARRATIVE: CASE EVENT DATE: 20240101
